FAERS Safety Report 13229194 (Version 1)
Quarter: 2017Q1

REPORT INFORMATION
  Report Type: Report from Study
  Country: None (occurrence: US)
  Receive Date: 20170214
  Receipt Date: 20170214
  Transmission Date: 20170428
  Serious: Yes (Other)
  Sender: FDA-Public Use
  Company Number: US-ABBVIE-17K-163-1865397-00

PATIENT
  Age: 30 Year
  Sex: Male

DRUGS (1)
  1. HUMIRA [Suspect]
     Active Substance: ADALIMUMAB
     Indication: CROHN^S DISEASE
     Dosage: 4 X 40 MILLIGRAMS
     Route: 058
     Dates: start: 20170202, end: 20170202

REACTIONS (11)
  - Dizziness [Recovering/Resolving]
  - Somnolence [Recovering/Resolving]
  - Seizure [Recovering/Resolving]
  - Photopsia [Recovering/Resolving]
  - Eye movement disorder [Recovering/Resolving]
  - Decorticate posture [Recovering/Resolving]
  - Respiration abnormal [Recovering/Resolving]
  - Unresponsive to stimuli [Recovering/Resolving]
  - Dyskinesia [Recovering/Resolving]
  - Hypopnoea [Recovering/Resolving]
  - Erythema [Recovering/Resolving]

NARRATIVE: CASE EVENT DATE: 20170202
